FAERS Safety Report 12376681 (Version 2)
Quarter: 2016Q2

REPORT INFORMATION
  Report Type: Spontaneous
  Country: US (occurrence: US)
  Receive Date: 20160517
  Receipt Date: 20160517
  Transmission Date: 20160815
  Serious: No
  Sender: FDA-Public Use
  Company Number: US-MALLINCKRODT-T201502725

PATIENT
  Sex: Male
  Weight: 82 kg

DRUGS (1)
  1. H.P. ACTHAR [Suspect]
     Active Substance: CORTICOTROPIN
     Indication: MULTIPLE SCLEROSIS
     Dosage: ^2 MG^, Q 10 DAYS
     Route: 065
     Dates: start: 2013

REACTIONS (1)
  - Chromaturia [Not Recovered/Not Resolved]
